FAERS Safety Report 22116553 (Version 1)
Quarter: 2023Q1

REPORT INFORMATION
  Report Type: Spontaneous
  Country: US (occurrence: None)
  Receive Date: 20230320
  Receipt Date: 20230320
  Transmission Date: 20230417
  Serious: Yes (Other)
  Sender: FDA-Public Use
  Company Number: None

PATIENT
  Age: 54 Year
  Sex: Male
  Weight: 104.4 kg

DRUGS (9)
  1. REVLIMID [Suspect]
     Active Substance: LENALIDOMIDE
     Indication: Plasma cell myeloma
     Dosage: FREQUENCY : DAILY;?
     Route: 048
     Dates: start: 20190110
  2. Cialis 10 mg tablet [Concomitant]
  3. dexamethasone 2 mg tablet [Concomitant]
  4. loperamide 2 mg capsule [Concomitant]
  5. OXYCODONE [Concomitant]
     Active Substance: OXYCODONE
  6. pantoprazole 40 mg tablet,delayed release [Concomitant]
  7. Soma 350 mg tablet [Concomitant]
  8. tramadol 50 mg tablet [Concomitant]
  9. valacyclovir 500 mg tablet [Concomitant]

REACTIONS (1)
  - Muscle spasms [None]

NARRATIVE: CASE EVENT DATE: 20230320
